FAERS Safety Report 13081412 (Version 1)
Quarter: 2017Q1

REPORT INFORMATION
  Report Type: Spontaneous
  Country: US (occurrence: US)
  Receive Date: 20170103
  Receipt Date: 20170103
  Transmission Date: 20170428
  Serious: No
  Sender: FDA-Public Use
  Company Number: US-PFIZER INC-2016595264

PATIENT
  Age: 77 Year
  Sex: Male
  Weight: 73.48 kg

DRUGS (5)
  1. TRAMADOL. [Concomitant]
     Active Substance: TRAMADOL
     Indication: PAIN
     Dosage: 100 MG, 1X/DAY (TWO 50MG TABLETS BY MOUTH AT BEDTIME)
     Route: 048
  2. LYRICA [Suspect]
     Active Substance: PREGABALIN
     Indication: PAIN
  3. LYRICA [Suspect]
     Active Substance: PREGABALIN
     Indication: RESTLESS LEGS SYNDROME
     Dosage: 300 UNK, UNK
  4. LYRICA [Suspect]
     Active Substance: PREGABALIN
     Indication: NEURALGIA
     Dosage: 400 MG, 1X/DAY (TAKING100MG IN THE MORNING, 200MG IN THE AFTERNOON, AND 100MG BEFORE BEDTIME)
     Dates: start: 2005
  5. MIRAPEX [Concomitant]
     Active Substance: PRAMIPEXOLE DIHYDROCHLORIDE
     Indication: RESTLESS LEGS SYNDROME
     Dosage: 0.125 MG, 3X/DAY
     Route: 048
     Dates: start: 2005

REACTIONS (3)
  - Product use issue [Unknown]
  - Pain in extremity [Not Recovered/Not Resolved]
  - Axillary pain [Not Recovered/Not Resolved]

NARRATIVE: CASE EVENT DATE: 2002
